FAERS Safety Report 10612788 (Version 2)
Quarter: 2015Q1

REPORT INFORMATION
  Report Type: Spontaneous
  Country: CH (occurrence: CH)
  Receive Date: 20141127
  Receipt Date: 20150127
  Transmission Date: 20150720
  Serious: Yes (Life-Threatening)
  Sender: FDA-Public Use
  Company Number: CH-ASTRAZENECA-2014SE89982

PATIENT
  Sex: Male
  Weight: 80 kg

DRUGS (4)
  1. NEBILET [Concomitant]
     Active Substance: NEBIVOLOL
  2. ATACAND [Suspect]
     Active Substance: CANDESARTAN CILEXETIL
     Route: 048
  3. ATACAND [Suspect]
     Active Substance: CANDESARTAN CILEXETIL
     Route: 048
  4. CARMEN [Concomitant]
     Active Substance: LERCANIDIPINE

REACTIONS (1)
  - Hypertension [Unknown]
